FAERS Safety Report 13694361 (Version 1)
Quarter: 2017Q2

REPORT INFORMATION
  Report Type: Other
  Country: US (occurrence: US)
  Receive Date: 20170627
  Receipt Date: 20170627
  Transmission Date: 20170830
  Serious: Yes (Hospitalization)
  Sender: FDA-Public Use
  Company Number: US-ACTELION-A-CH2017-155730

PATIENT
  Age: 48 Year
  Sex: Male

DRUGS (9)
  1. EPOPROSTENOL SODIUM. [Suspect]
     Active Substance: EPOPROSTENOL SODIUM
     Dosage: 14 NG, PER MIN
     Route: 042
  2. NITROGLYCERIN. [Concomitant]
     Active Substance: NITROGLYCERIN
     Dosage: 1 ?G/KG, PER MIN
  3. EPOPROSTENOL SODIUM. [Suspect]
     Active Substance: EPOPROSTENOL SODIUM
     Indication: PORTOPULMONARY HYPERTENSION
     Dosage: 9 NG/KG, PER MIN
     Route: 042
  4. EPOPROSTENOL SODIUM. [Suspect]
     Active Substance: EPOPROSTENOL SODIUM
     Dosage: 20 NG/KG, PER MIN
     Route: 042
  5. NITROGLYCERIN. [Concomitant]
     Active Substance: NITROGLYCERIN
     Dosage: 2 ?G/KG, PER MIN
  6. MILRINONE [Concomitant]
     Active Substance: MILRINONE
     Dosage: 0.5 ?G/KG, PER MIN
  7. FUROSEMIDE. [Concomitant]
     Active Substance: FUROSEMIDE
  8. MILRINONE [Concomitant]
     Active Substance: MILRINONE
     Dosage: 1 ?G/KG, PER MIN
  9. SILDENAFIL. [Concomitant]
     Active Substance: SILDENAFIL
     Dosage: 20 MG, TID

REACTIONS (6)
  - Catheter placement [Unknown]
  - Portopulmonary hypertension [Unknown]
  - Condition aggravated [Unknown]
  - Liver transplant [Recovered/Resolved]
  - Dyspnoea [Unknown]
  - Surgical failure [Unknown]
